FAERS Safety Report 7371856-8 (Version None)
Quarter: 2011Q1

REPORT INFORMATION
  Report Type: 
  Country: None (occurrence: None)
  Receive Date: 20110324
  Receipt Date: 20110317
  Transmission Date: 20110831
  Serious: Yes (Death)
  Sender: FDA-Public Use
  Company Number: US-ROCHE-766621

PATIENT
  Age: 48 Year
  Sex: Female

DRUGS (5)
  1. ZOLPIDEM [Suspect]
     Route: 048
  2. ARIPIPRAZOLE [Suspect]
     Route: 048
  3. NORTRIPTYLINE [Suspect]
     Route: 048
  4. CLONAZEPAM [Suspect]
     Route: 048
  5. MODAFINIL [Suspect]
     Route: 048

REACTIONS (1)
  - TOXICITY TO VARIOUS AGENTS [None]
